FAERS Safety Report 21710848 (Version 2)
Quarter: 2022Q4

REPORT INFORMATION
  Report Type: Spontaneous
  Country: US (occurrence: US)
  Receive Date: 20221212
  Receipt Date: 20221215
  Transmission Date: 20230113
  Serious: No
  Sender: FDA-Public Use
  Company Number: US-JNJFOC-20221210312

PATIENT
  Age: 37 Year
  Sex: Female

DRUGS (7)
  1. TYLENOL [Suspect]
     Active Substance: ACETAMINOPHEN
     Indication: Pain
     Route: 065
     Dates: start: 202211
  2. TYLENOL [Suspect]
     Active Substance: ACETAMINOPHEN
     Indication: Pyrexia
  3. DICLOFENAC [Concomitant]
     Active Substance: DICLOFENAC
     Indication: Pain
     Route: 065
     Dates: start: 202211
  4. DICLOFENAC [Concomitant]
     Active Substance: DICLOFENAC
     Indication: Pyrexia
  5. DICLOFENAC [Concomitant]
     Active Substance: DICLOFENAC
     Indication: COVID-19
  6. NALTREXONE [Concomitant]
     Active Substance: NALTREXONE
     Indication: COVID-19
     Route: 065
  7. ATOMOXETINE [Concomitant]
     Active Substance: ATOMOXETINE
     Indication: COVID-19
     Route: 065

REACTIONS (2)
  - Pyrexia [Unknown]
  - Therapeutic product effect incomplete [Unknown]

NARRATIVE: CASE EVENT DATE: 20221101
